FAERS Safety Report 4721611-X (Version None)
Quarter: 2005Q3

REPORT INFORMATION
  Report Type: 
  Country: None (occurrence: None)
  Receive Date: 20050721
  Receipt Date: 20041230
  Transmission Date: 20060218
  Serious: No
  Sender: FDA-Public Use
  Company Number: US-BRISTOL-MYERS SQUIBB COMPANY-12810008

PATIENT
  Age: 66 Year
  Sex: Male

DRUGS (2)
  1. COUMADIN [Suspect]
  2. UNKNOWN TO US [Concomitant]

REACTIONS (4)
  - ARTHROPOD BITE [None]
  - DRUG TOXICITY [None]
  - PAIN IN EXTREMITY [None]
  - RASH PUSTULAR [None]
